FAERS Safety Report 5176632-2 (Version None)
Quarter: 2006Q4

REPORT INFORMATION
  Report Type: 
  Country: None (occurrence: None)
  Receive Date: 20061215
  Receipt Date: 20061207
  Transmission Date: 20070319
  Serious: Yes (Hospitalization)
  Sender: FDA-Public Use
  Company Number: FR-ABBOTT-06P-056-0352735-00

PATIENT
  Age: 45 Year
  Sex: Male

DRUGS (2)
  1. DEPAKOTE [Suspect]
     Indication: BIPOLAR DISORDER
     Route: 048
  2. VALPROMIDE [Concomitant]
     Indication: BIPOLAR DISORDER
     Route: 048

REACTIONS (9)
  - AMINO ACID LEVEL DECREASED [None]
  - CONFUSIONAL STATE [None]
  - DEHYDRATION [None]
  - ENCEPHALOPATHY [None]
  - GAMMA-GLUTAMYLTRANSFERASE INCREASED [None]
  - HYPERNATRAEMIA [None]
  - HYPERTONIA [None]
  - HYPOKINESIA [None]
  - TRANSAMINASES INCREASED [None]
